FAERS Safety Report 26160550 (Version 1)
Quarter: 2025Q4

REPORT INFORMATION
  Report Type: Spontaneous
  Country: US (occurrence: US)
  Receive Date: 20251216
  Receipt Date: 20251216
  Transmission Date: 20260117
  Serious: Yes (Other)
  Sender: STRIDES
  Company Number: US-STRIDES ARCOLAB LIMITED-2025SP015574

PATIENT
  Age: 80 Year
  Sex: Male

DRUGS (3)
  1. ROSUVASTATIN [Interacting]
     Active Substance: ROSUVASTATIN
     Indication: Product used for unknown indication
     Dosage: UNK
     Route: 065
  2. ABIRATERONE [Interacting]
     Active Substance: ABIRATERONE
     Indication: Hormone-refractory prostate cancer
     Dosage: UNK
     Route: 065
  3. ABIRATERONE [Interacting]
     Active Substance: ABIRATERONE
     Indication: Prostate cancer metastatic

REACTIONS (3)
  - Rhabdomyolysis [Recovering/Resolving]
  - Drug interaction [Unknown]
  - Drug level increased [Unknown]
